FAERS Safety Report 21031769 (Version 1)
Quarter: 2022Q3

REPORT INFORMATION
  Report Type: Spontaneous
  Country: US (occurrence: None)
  Receive Date: 20220701
  Receipt Date: 20220701
  Transmission Date: 20221027
  Serious: No
  Sender: FDA-Public Use
  Company Number: US-ROCHE-2822426

PATIENT
  Sex: Female

DRUGS (4)
  1. ACTEMRA [Suspect]
     Active Substance: TOCILIZUMAB
     Indication: Rheumatoid arthritis
     Dosage: 200 MG/ 10 ML
     Route: 042
     Dates: start: 20210209
  2. ACTEMRA [Suspect]
     Active Substance: TOCILIZUMAB
     Dosage: DOSE:80 MG/4 ML
     Route: 042
     Dates: start: 20211007
  3. ACTEMRA [Suspect]
     Active Substance: TOCILIZUMAB
     Dosage: TOTAL DOSE OR AMOUNT FROM COMBINED 400 MG AND 80 MG ACTEMRA: 549 MG?STRENGTH: 80MG/4ML
     Route: 042
     Dates: start: 202110
  4. ACTEMRA [Suspect]
     Active Substance: TOCILIZUMAB
     Dosage: TOTAL DOSE OR AMOUNT FROM COMBINED 400 MG AND 80 MG ACTEMRA: 549 MG?STRENGTH: 80MG/4ML
     Route: 042
     Dates: start: 202110

REACTIONS (4)
  - Joint swelling [Unknown]
  - Arthralgia [Unknown]
  - Off label use [Unknown]
  - Condition aggravated [Unknown]
